FAERS Safety Report 11099362 (Version 2)
Quarter: 2015Q2

REPORT INFORMATION
  Report Type: Report from Study
  Country: US (occurrence: US)
  Receive Date: 20150508
  Receipt Date: 20150511
  Transmission Date: 20150821
  Serious: No
  Sender: FDA-Public Use
  Company Number: US-ASTRAZENECA-2015SE41169

PATIENT
  Age: 321 Month
  Sex: Female
  Weight: 68 kg

DRUGS (6)
  1. SEROQUEL [Suspect]
     Active Substance: QUETIAPINE FUMARATE
     Indication: AUTISM SPECTRUM DISORDER
     Route: 048
     Dates: start: 201403
  2. SEROQUEL [Suspect]
     Active Substance: QUETIAPINE FUMARATE
     Indication: AUTISM SPECTRUM DISORDER
     Route: 048
     Dates: start: 201309, end: 201403
  3. SEROQUEL [Suspect]
     Active Substance: QUETIAPINE FUMARATE
     Indication: DEPRESSION
     Route: 048
     Dates: start: 201309, end: 201403
  4. SEROQUEL [Suspect]
     Active Substance: QUETIAPINE FUMARATE
     Indication: BIPOLAR DISORDER
     Route: 048
     Dates: start: 201309, end: 201403
  5. SEROQUEL [Suspect]
     Active Substance: QUETIAPINE FUMARATE
     Indication: DEPRESSION
     Route: 048
     Dates: start: 201403
  6. SEROQUEL [Suspect]
     Active Substance: QUETIAPINE FUMARATE
     Indication: BIPOLAR DISORDER
     Route: 048
     Dates: start: 201403

REACTIONS (10)
  - Hyperhidrosis [Unknown]
  - Feeling abnormal [Unknown]
  - Drug withdrawal syndrome [Unknown]
  - Mental impairment [Unknown]
  - Tremor [Unknown]
  - Drug dose omission [Unknown]
  - Anger [Not Recovered/Not Resolved]
  - Erythema [Unknown]
  - Aphonia [Unknown]
  - Drug ineffective [Not Recovered/Not Resolved]

NARRATIVE: CASE EVENT DATE: 201411
